FAERS Safety Report 6067525-7 (Version None)
Quarter: 2009Q1

REPORT INFORMATION
  Report Type: 
  Country: None (occurrence: None)
  Receive Date: 20090205
  Receipt Date: 20090126
  Transmission Date: 20090719
  Serious: Yes (Other)
  Sender: FDA-Public Use
  Company Number: GB-SANOFI-SYNTHELABO-A01200900860

PATIENT
  Age: 50 Year
  Sex: Male
  Weight: 82.73 kg

DRUGS (10)
  1. PNEUMOVAX II [Concomitant]
     Indication: IMMUNISATION
     Route: 065
     Dates: start: 20081024, end: 20081024
  2. NITROGLYCERIN [Concomitant]
     Indication: CHEST PAIN
     Route: 065
     Dates: start: 20071116
  3. CANDESARTAN CILEXETIL [Concomitant]
     Indication: CARDIAC DISORDER
     Route: 065
     Dates: start: 20080516
  4. ATORVASTATIN [Concomitant]
     Indication: BLOOD CHOLESTEROL INCREASED
     Route: 065
     Dates: start: 20080418
  5. ASPIRIN [Concomitant]
     Indication: CARDIAC DISORDER
     Route: 065
     Dates: start: 20071019
  6. PILOCARPINE [Concomitant]
     Indication: EYE DISORDER
     Route: 065
     Dates: start: 20081125
  7. BISOPROLOL FUMARATE [Concomitant]
     Indication: ANGINA PECTORIS
     Route: 065
     Dates: start: 20080418
  8. BISOPROLOL FUMARATE [Concomitant]
     Indication: PALPITATIONS
     Route: 065
     Dates: start: 20080418
  9. AZELASTINE HCL [Concomitant]
     Indication: CONJUNCTIVITIS ALLERGIC
     Route: 065
     Dates: start: 20021127
  10. PLAVIX [Suspect]
     Indication: MYOCARDIAL ISCHAEMIA
     Route: 048
     Dates: start: 20071217, end: 20081212

REACTIONS (1)
  - VISION BLURRED [None]
